FAERS Safety Report 5336099-8 (Version None)
Quarter: 2007Q1

REPORT INFORMATION
  Report Type: 
  Country: None (occurrence: None)
  Receive Date: 20070308
  Receipt Date: 20070111
  Transmission Date: 20070707
  Serious: Yes (Hospitalization)
  Sender: FDA-Public Use
  Company Number: 2007MP000024

PATIENT
  Age: 66 Year
  Sex: Male

DRUGS (2)
  1. DACOGEN [Suspect]
     Dosage: 20 MG/M**2;QD;IV
     Route: 042
     Dates: end: 20061117
  2. DACOGEN [Suspect]
     Dosage: 20 MG/M**2;QD;IV
     Route: 042
     Dates: start: 20060901

REACTIONS (8)
  - CHILLS [None]
  - HAEMOGLOBIN DECREASED [None]
  - OFF LABEL USE [None]
  - PHARYNGOLARYNGEAL PAIN [None]
  - PLATELET COUNT DECREASED [None]
  - RED BLOOD CELL COUNT DECREASED [None]
  - RESPIRATORY TRACT CONGESTION [None]
  - WHITE BLOOD CELL COUNT DECREASED [None]
